FAERS Safety Report 21554009 (Version 5)
Quarter: 2022Q4

REPORT INFORMATION
  Report Type: Report from Study
  Country: US (occurrence: US)
  Receive Date: 20221104
  Receipt Date: 20221213
  Transmission Date: 20230113
  Serious: Yes (Hospitalization, Other)
  Sender: FDA-Public Use
  Company Number: US-UCBSA-2022057204

PATIENT
  Age: 49 Year
  Sex: Female

DRUGS (3)
  1. MIDAZOLAM [Suspect]
     Active Substance: MIDAZOLAM
     Indication: Seizure
     Dosage: 5 MILLIGRAM, AS NEEDED (PRN)
     Route: 045
  2. MIDAZOLAM [Suspect]
     Active Substance: MIDAZOLAM
     Indication: Epilepsy
  3. LAMICTAL [Concomitant]
     Active Substance: LAMOTRIGINE
     Indication: Product used for unknown indication

REACTIONS (3)
  - Seizure [Unknown]
  - COVID-19 [Not Recovered/Not Resolved]
  - Migraine [Not Recovered/Not Resolved]

NARRATIVE: CASE EVENT DATE: 20220901
